FAERS Safety Report 23058291 (Version 1)
Quarter: 2023Q4

REPORT INFORMATION
  Report Type: Spontaneous
  Country: US (occurrence: None)
  Receive Date: 20231011
  Receipt Date: 20231011
  Transmission Date: 20240110
  Serious: Yes (Hospitalization)
  Sender: FDA-Public Use
  Company Number: None

PATIENT
  Age: 29 Year
  Sex: Female
  Weight: 117 kg

DRUGS (4)
  1. AMJEVITA [Suspect]
     Active Substance: ADALIMUMAB-ATTO
     Indication: Hidradenitis
     Dates: start: 20230807, end: 20231002
  2. LEXAPRO [Concomitant]
     Active Substance: ESCITALOPRAM OXALATE
  3. WELLBUTRIN [Concomitant]
     Active Substance: BUPROPION HYDROCHLORIDE
  4. SEROQUEL [Concomitant]
     Active Substance: QUETIAPINE FUMARATE

REACTIONS (3)
  - Headache [None]
  - Hypertension [None]
  - Feeling abnormal [None]

NARRATIVE: CASE EVENT DATE: 20231005
